FAERS Safety Report 9301735 (Version 1)
Quarter: 2013Q2

REPORT INFORMATION
  Report Type: Other
  Country: GB (occurrence: GB)
  Receive Date: 20130521
  Receipt Date: 20130521
  Transmission Date: 20140414
  Serious: Yes (Other)
  Sender: FDA-Public Use
  Company Number: GB-WATSON-2013-08438

PATIENT
  Age: 77 Year
  Sex: 0

DRUGS (3)
  1. TERBINAFINE HYDROCHLORIDE (UNKNOWN) [Suspect]
     Indication: FUNGAL INFECTION
     Dosage: 1 DF, DAILY
     Route: 048
     Dates: start: 20130415, end: 20130416
  2. METOPROLOL [Concomitant]
     Indication: ARRHYTHMIA
     Dosage: 5 DF, DAILY, 2 MORNING. 1 MIDDAY. 2 AT NIGHT.TAKEN FOR 2 YEARS.
     Route: 048
  3. LANSOPRAZOLE [Concomitant]
     Indication: DYSPEPSIA
     Dosage: 1 DF, DAILY
     Route: 048

REACTIONS (4)
  - Heart rate increased [Recovering/Resolving]
  - Feeling hot [Recovering/Resolving]
  - Hyperhidrosis [Recovering/Resolving]
  - Dizziness [Recovering/Resolving]
